FAERS Safety Report 16209010 (Version 1)
Quarter: 2019Q2

REPORT INFORMATION
  Report Type: Spontaneous
  Country: GR (occurrence: GR)
  Receive Date: 20190417
  Receipt Date: 20190417
  Transmission Date: 20190711
  Serious: Yes (Other)
  Sender: FDA-Public Use
  Company Number: GR-AMREGENT-20190703

PATIENT
  Age: 63 Year
  Sex: Male

DRUGS (2)
  1. HUMIRA [Concomitant]
     Active Substance: ADALIMUMAB
     Dosage: 40 MG 1 IN 2 WK
     Route: 065
  2. FERINJECT [Suspect]
     Active Substance: FERRIC CARBOXYMALTOSE
     Dosage: 1 GM
     Route: 042

REACTIONS (7)
  - Hyponatraemia [Unknown]
  - Blood pressure increased [Unknown]
  - Malaise [Unknown]
  - Tuberculosis of central nervous system [Unknown]
  - Somnolence [Unknown]
  - Lethargy [Unknown]
  - Pyrexia [Unknown]
